FAERS Safety Report 19057184 (Version 1)
Quarter: 2021Q1

REPORT INFORMATION
  Report Type: Report from Study
  Country: US (occurrence: US)
  Receive Date: 20210324
  Receipt Date: 20210324
  Transmission Date: 20210420
  Serious: Yes (Death, Other)
  Sender: FDA-Public Use
  Company Number: US-GILEAD-2021-0521472

PATIENT
  Age: 70 Year
  Sex: Male

DRUGS (14)
  1. XANAX [Concomitant]
     Active Substance: ALPRAZOLAM
     Dosage: XANAX 0.5 MG TABLET
  2. LOSARTAN. [Concomitant]
     Active Substance: LOSARTAN
     Dosage: LOSARTAN?HYDROCHLOROTHIAZIDE
  3. METOPROLOL SUCCINATE. [Concomitant]
     Active Substance: METOPROLOL SUCCINATE
  4. MORPHINE SULFATE. [Concomitant]
     Active Substance: MORPHINE SULFATE
     Dosage: MORPHINE SULFATE 30 MG TABLET
  5. FENTANYL. [Concomitant]
     Active Substance: FENTANYL
     Dosage: FENTANYL 100 MCG/HR PATCH TD72
  6. ELIQUIS [Concomitant]
     Active Substance: APIXABAN
     Dosage: ELIQUIS 2.5 MG TABLET
  7. COMPAZINE [PROCHLORPERAZINE EDISYLATE] [Concomitant]
     Active Substance: PROCHLORPERAZINE EDISYLATE
     Dosage: COMPAZINE 10 MG TABLET
  8. ALBUTEROL SULFATE. [Concomitant]
     Active Substance: ALBUTEROL SULFATE
  9. FLOVENT [Concomitant]
     Active Substance: FLUTICASONE PROPIONATE
     Dosage: FLOVENT DISKUS 100 MCG BLST W/DEV
  10. LEVOTHYROXINE. [Concomitant]
     Active Substance: LEVOTHYROXINE
     Dosage: LEVOTHYROXINE 175 MCG CAPSULE
  11. AZTREONAM LYSINE [Suspect]
     Active Substance: AZTREONAM LYSINE
     Indication: CYSTIC FIBROSIS
     Dosage: 75 MG, TID, FOR 28 DAYS ON AND 28 DAYS OFF, THEN REPEAT
     Route: 055
     Dates: start: 20210108
  12. LACTULOSE. [Concomitant]
     Active Substance: LACTULOSE
     Dosage: LACTULOSE 10 G/15 ML SOLUTION
  13. AMIODARONE [Concomitant]
     Active Substance: AMIODARONE
     Dosage: AMIODARONE HCL 100 MG TABLET
  14. LASIX [Concomitant]
     Active Substance: FUROSEMIDE
     Dosage: LASIX 20 MG TABLET

REACTIONS (1)
  - Death [Fatal]

NARRATIVE: CASE EVENT DATE: 20210308
